FAERS Safety Report 12985315 (Version 9)
Quarter: 2017Q3

REPORT INFORMATION
  Report Type: Spontaneous
  Country: US (occurrence: US)
  Receive Date: 20161130
  Receipt Date: 20170914
  Transmission Date: 20171127
  Serious: Yes (Other)
  Sender: FDA-Public Use
  Company Number: PHEH2016US031106

PATIENT
  Sex: Female
  Weight: 58.96 kg

DRUGS (2)
  1. ZOFRAN [Suspect]
     Active Substance: ONDANSETRON HYDROCHLORIDE
     Indication: PRODUCT USED FOR UNKNOWN INDICATION
     Dosage: 1 MG, Q6H
     Route: 042
     Dates: start: 20041106
  2. ZOFRAN [Suspect]
     Active Substance: ONDANSETRON HYDROCHLORIDE
     Indication: VOMITING IN PREGNANCY
     Dosage: 4 MG, Q4H
     Route: 048
     Dates: start: 20050123

REACTIONS (54)
  - Small intestinal obstruction [Unknown]
  - Maternal exposure during pregnancy [Unknown]
  - Pharyngitis [Unknown]
  - Tooth fracture [Unknown]
  - Hyperhidrosis [Unknown]
  - Myalgia [Unknown]
  - Hypertension [Unknown]
  - Bartholin^s abscess [Unknown]
  - Mood swings [Unknown]
  - Peripheral swelling [Unknown]
  - Fungal infection [Unknown]
  - Bacterial vaginosis [Unknown]
  - Panic attack [Unknown]
  - Anaemia [Unknown]
  - Diverticulitis [Unknown]
  - Hypokalaemia [Unknown]
  - Breast enlargement [Unknown]
  - Back pain [Unknown]
  - Hyperventilation [Unknown]
  - Dehydration [Unknown]
  - Urinary tract infection [Unknown]
  - Headache [Unknown]
  - Dizziness [Unknown]
  - Pancreatitis [Unknown]
  - Costochondritis [Unknown]
  - Gastritis [Unknown]
  - Abdominal distension [Unknown]
  - Constipation [Unknown]
  - Cholecystitis [Unknown]
  - Adnexal torsion [Unknown]
  - Peptic ulcer [Unknown]
  - Emotional distress [Unknown]
  - Gastrooesophageal reflux disease [Unknown]
  - Vulva cyst [Unknown]
  - Anxiety [Unknown]
  - Diarrhoea [Unknown]
  - Product use in unapproved indication [Unknown]
  - Appendicitis [Unknown]
  - Intestinal ischaemia [Unknown]
  - Uterine haemorrhage [Unknown]
  - Depression [Unknown]
  - Dental caries [Unknown]
  - Abdominal pain [Unknown]
  - Colitis [Unknown]
  - Pelvic pain [Unknown]
  - Ulcerative keratitis [Unknown]
  - Ovarian cyst ruptured [Unknown]
  - Haematochezia [Unknown]
  - Injury [Unknown]
  - Vaginal haemorrhage [Unknown]
  - Toothache [Unknown]
  - Gastroenteritis [Unknown]
  - Ovarian cyst [Unknown]
  - Bartholin^s cyst [Unknown]
